FAERS Safety Report 8580269-2 (Version None)
Quarter: 2012Q3

REPORT INFORMATION
  Report Type: 
  Country: None (occurrence: None)
  Receive Date: 20120808
  Receipt Date: 20120802
  Transmission Date: 20120928
  Serious: Yes (Other)
  Sender: FDA-Public Use
  Company Number: PHHY2012US067944

PATIENT
  Age: 92 Year
  Sex: Female

DRUGS (6)
  1. VITAMIN TAB [Concomitant]
     Indication: ARTHRITIS
     Route: 048
  2. BLOOD PRESSURE PILLS [Concomitant]
     Dates: start: 20000101
  3. ASCRIPTIN BUFFERED ARTHRITISPAIN CAPLETS [Suspect]
     Indication: HEADACHE
  4. ASCRIPTIN BUFFERED ARTHRITISPAIN CAPLETS [Suspect]
     Indication: CARDIAC DISORDER
  5. SLEEPING PILLS [Concomitant]
     Indication: SLEEP DISORDER
     Dosage: 10 MG EVERY NIGHT
     Dates: start: 20000101
  6. ASCRIPTIN BUFFERED ARTHRITISPAIN CAPLETS [Suspect]
     Indication: ARTHRITIS
     Dosage: 325 MG EVERYDAY NIGHT
     Route: 048
     Dates: start: 19600101

REACTIONS (2)
  - CEREBROVASCULAR ACCIDENT [None]
  - INCORRECT DRUG ADMINISTRATION DURATION [None]
